FAERS Safety Report 7054416-8 (Version None)
Quarter: 2010Q4

REPORT INFORMATION
  Report Type: 
  Country: None (occurrence: None)
  Receive Date: 20101020
  Receipt Date: 20101013
  Transmission Date: 20110411
  Serious: Yes (Other)
  Sender: FDA-Public Use
  Company Number: US-US-EMD SERONO, INC.-7020527

PATIENT
  Sex: Female
  Weight: 86 kg

DRUGS (6)
  1. REBIF [Suspect]
     Indication: MULTIPLE SCLEROSIS
     Route: 058
     Dates: start: 20100407
  2. BACLOFEN [Concomitant]
     Indication: MULTIPLE SCLEROSIS
  3. NEURONTIN [Concomitant]
     Indication: MULTIPLE SCLEROSIS
  4. DIOVAN [Concomitant]
     Indication: HYPERTENSION
  5. HYDROCHLOROTHIAZIDE [Concomitant]
     Indication: HYPERTENSION
  6. HYDROCHLOROTHIAZIDE [Concomitant]
     Indication: SWELLING

REACTIONS (2)
  - BRONCHITIS [None]
  - RESTRICTIVE PULMONARY DISEASE [None]
